FAERS Safety Report 7676108-4 (Version None)
Quarter: 2011Q3

REPORT INFORMATION
  Report Type: 
  Country: None (occurrence: None)
  Receive Date: 20110811
  Receipt Date: 20110801
  Transmission Date: 20111222
  Serious: Yes (Hospitalization)
  Sender: FDA-Public Use
  Company Number: US-JNJFOC-20071109948

PATIENT
  Sex: Female
  Weight: 46 kg

DRUGS (3)
  1. MESALAMINE [Concomitant]
  2. INFLIXIMAB [Suspect]
     Indication: CROHN'S DISEASE
     Route: 042
     Dates: start: 20030605
  3. INFLIXIMAB [Suspect]
     Dosage: TOTAL 31 DOSES
     Route: 042
     Dates: start: 20071011

REACTIONS (1)
  - VARICELLA [None]
